FAERS Safety Report 5634214-X (Version None)
Quarter: 2008Q1

REPORT INFORMATION
  Report Type: 
  Country: None (occurrence: None)
  Receive Date: 20080219
  Receipt Date: 20080212
  Transmission Date: 20080703
  Serious: Yes (Death, Hospitalization)
  Sender: FDA-Public Use
  Company Number: 2007SP024306

PATIENT
  Age: 64 Year
  Sex: Male
  Weight: 74 kg

DRUGS (6)
  1. PEG-INTRON [Suspect]
     Indication: HEPATITIS C
     Dosage: 30 MCG; QW; SC
     Route: 058
     Dates: start: 20061023, end: 20071009
  2. REBETOL [Suspect]
     Indication: HEPATITIS C
     Dosage: 200 MG; QD; PO
     Route: 048
     Dates: start: 20061023, end: 20071014
  3. SUMIFERON (PREV.) [Concomitant]
  4. INTAON A (PREV.) [Concomitant]
  5. GASTER D (CON.) [Concomitant]
  6. GASTER D (CON.) [Concomitant]

REACTIONS (7)
  - CEREBRAL HAEMORRHAGE [None]
  - FALL [None]
  - HEPATIC NEOPLASM MALIGNANT RECURRENT [None]
  - HYDROCEPHALUS [None]
  - HYPERTENSION [None]
  - NERVOUS SYSTEM DISORDER [None]
  - THALAMUS HAEMORRHAGE [None]
